FAERS Safety Report 7597114-4 (Version None)
Quarter: 2011Q3

REPORT INFORMATION
  Report Type: 
  Country: None (occurrence: None)
  Receive Date: 20110708
  Receipt Date: 20110706
  Transmission Date: 20111222
  Serious: No
  Sender: FDA-Public Use
  Company Number: US-PFIZER INC-2011152568

PATIENT
  Sex: Female

DRUGS (6)
  1. PRISTIQ [Suspect]
     Indication: DEPRESSION
     Dosage: 60 MG, DAILY
     Route: 048
     Dates: start: 20110705
  2. PRISTIQ [Suspect]
     Indication: ANXIETY
  3. FLUOXETINE [Suspect]
     Indication: DEPRESSION
     Dosage: UNK
     Dates: start: 20110617, end: 20110703
  4. FLUOXETINE [Suspect]
     Indication: ANXIETY
  5. DILANTIN [Suspect]
     Indication: CONVULSION
     Dosage: 500 MG, DAILY
     Route: 048
  6. KLONOPIN [Suspect]
     Indication: CONVULSION
     Dosage: 0.5 MG, DAILY
     Route: 048

REACTIONS (3)
  - TREMOR [None]
  - DIZZINESS [None]
  - INSOMNIA [None]
